FAERS Safety Report 4323374-9 (Version None)
Quarter: 2004Q1

REPORT INFORMATION
  Report Type: 
  Country: None (occurrence: None)
  Receive Date: 20040324
  Receipt Date: 20040324
  Transmission Date: 20041129
  Serious: Yes (Life-Threatening, Disabling)
  Sender: FDA-Public Use
  Company Number: None

PATIENT
  Sex: Female
  Weight: 54 kg

DRUGS (3)
  1. BLEOMYCIN [Suspect]
     Indication: NEOPLASM
     Dosage: 23 UNITS
     Dates: start: 20040202
  2. BLEOMYCIN [Suspect]
     Indication: NEOPLASM
     Dosage: 23 UNITS
     Dates: start: 20040209
  3. BLEOMYCIN [Suspect]
     Indication: NEOPLASM
     Dosage: 23 UNITS
     Dates: start: 20040216

REACTIONS (1)
  - PULMONARY FUNCTION TEST DECREASED [None]
